FAERS Safety Report 15288912 (Version 1)
Quarter: 2018Q3

REPORT INFORMATION
  Report Type: Spontaneous
  Country: US (occurrence: US)
  Receive Date: 20180802
  Receipt Date: 20180802
  Transmission Date: 20181010
  Serious: Yes (Other)
  Sender: FDA-Public Use
  Company Number: None

PATIENT
  Age: 54 Year
  Sex: Male
  Weight: 126 kg

DRUGS (3)
  1. DICLOFENAC GEL [Suspect]
     Active Substance: DICLOFENAC
     Indication: ARTHRALGIA
     Route: 061
     Dates: start: 20180612, end: 20180724
  2. CELECOXIB. [Concomitant]
     Active Substance: CELECOXIB
  3. MORTON [Concomitant]

REACTIONS (1)
  - Gingival injury [None]

NARRATIVE: CASE EVENT DATE: 20180711
